FAERS Safety Report 9252419 (Version 1)
Quarter: 2013Q1

REPORT INFORMATION
  Report Type: Spontaneous
  Country: US (occurrence: None)
  Receive Date: 20130305
  Receipt Date: 20130305
  Transmission Date: 20140127
  Serious: Yes (Other)
  Sender: FDA-Public Use
  Company Number: 163-21880-12083319

PATIENT
  Age: 55 Year
  Sex: Female
  Weight: 79.2 kg

DRUGS (5)
  1. REVLIMID [Suspect]
     Indication: PLASMA CELL MYELOMA
     Dosage: 10 MG, 1 IN 1 D, PO
     Route: 048
     Dates: start: 201206
  2. VITAMINS [Suspect]
  3. AREDIA (PAMIDRONATE DISODIUM) [Suspect]
  4. CALCIUM + VITAMIN D (LEKOVIT CA) [Suspect]
  5. ASPIRIN (ACETYLSALICYCLIC ACID) [Suspect]

REACTIONS (2)
  - Muscle spasms [None]
  - Gait disturbance [None]
